FAERS Safety Report 23191919 (Version 1)
Quarter: 2023Q4

REPORT INFORMATION
  Report Type: Spontaneous
  Country: US (occurrence: US)
  Receive Date: 20231116
  Receipt Date: 20231116
  Transmission Date: 20240110
  Serious: No
  Sender: FDA-Public Use
  Company Number: US-BAYER-2023A156515

PATIENT
  Age: 32 Year
  Sex: Female

DRUGS (2)
  1. MIRENA [Suspect]
     Active Substance: LEVONORGESTREL
     Indication: Abdominal pain lower
     Dosage: 20?G/DAY
     Route: 015
     Dates: start: 20190702, end: 20210105
  2. MIRENA [Suspect]
     Active Substance: LEVONORGESTREL
     Indication: Migraine

REACTIONS (4)
  - Abdominal pain lower [Recovered/Resolved]
  - Migraine [Recovered/Resolved]
  - Device use issue [None]
  - Off label use of device [None]

NARRATIVE: CASE EVENT DATE: 20190702
